FAERS Safety Report 9251040 (Version 1)
Quarter: 2013Q2

REPORT INFORMATION
  Report Type: Spontaneous
  Country: DE (occurrence: DE)
  Receive Date: 20130424
  Receipt Date: 20130424
  Transmission Date: 20140414
  Serious: Yes (Other)
  Sender: FDA-Public Use
  Company Number: DE-PFIZER INC-2013126908

PATIENT
  Age: 76 Year
  Sex: Female

DRUGS (1)
  1. RAMILICH [Suspect]
     Dosage: 2.5 MG, DAILY
     Route: 048
     Dates: start: 201212

REACTIONS (1)
  - Bronchitis [Unknown]
